FAERS Safety Report 6446427-8 (Version None)
Quarter: 2009Q4

REPORT INFORMATION
  Report Type: 
  Country: None (occurrence: None)
  Receive Date: 20091119
  Receipt Date: 20091109
  Transmission Date: 20100525
  Serious: Yes (Other)
  Sender: FDA-Public Use
  Company Number: PHHY2009BR49516

PATIENT
  Age: 54 Year
  Sex: Female

DRUGS (1)
  1. VOLTAREN [Suspect]
     Dosage: 50 MG
     Route: 054

REACTIONS (4)
  - ANORECTAL DISCOMFORT [None]
  - APPLICATION SITE FISSURE [None]
  - NERVOUSNESS [None]
  - RECTAL HAEMORRHAGE [None]
